FAERS Safety Report 4955307-6 (Version None)
Quarter: 2006Q1

REPORT INFORMATION
  Report Type: 
  Country: None (occurrence: None)
  Receive Date: 20060328
  Receipt Date: 20060323
  Transmission Date: 20060701
  Serious: Yes (Hospitalization)
  Sender: FDA-Public Use
  Company Number: FR-JNJFOC-20060306170

PATIENT
  Age: 44 Year
  Sex: Female

DRUGS (1)
  1. CAELYX [Suspect]
     Route: 042

REACTIONS (3)
  - COMA [None]
  - CONVULSION [None]
  - EPILEPSY [None]
